FAERS Safety Report 5040730-4 (Version None)
Quarter: 2006Q3

REPORT INFORMATION
  Report Type: 
  Country: None (occurrence: None)
  Receive Date: 20060703
  Receipt Date: 20060620
  Transmission Date: 20061208
  Serious: Yes (Other)
  Sender: FDA-Public Use
  Company Number: PHBS2006FR09246

PATIENT
  Age: 61 Year
  Sex: Male

DRUGS (2)
  1. NEORAL [Suspect]
     Indication: LIVER TRANSPLANT
     Dosage: 50 MG, BID
  2. PREDNISONE (NGX) [Suspect]
     Indication: LIVER TRANSPLANT
     Dosage: 2 MG PER DAY

REACTIONS (13)
  - ALANINE AMINOTRANSFERASE INCREASED [None]
  - ANAEMIA [None]
  - ASPARTATE AMINOTRANSFERASE INCREASED [None]
  - BLOOD CREATININE INCREASED [None]
  - BLOOD UREA INCREASED [None]
  - ECCHYMOSIS [None]
  - EPISTAXIS [None]
  - HAEMOGLOBIN DECREASED [None]
  - RASH MACULAR [None]
  - RENAL FAILURE [None]
  - THROMBOCYTOPENIA [None]
  - VITAMIN C DECREASED [None]
  - VITAMIN C DEFICIENCY [None]
